FAERS Safety Report 6584654-X (Version None)
Quarter: 2010Q1

REPORT INFORMATION
  Report Type: 
  Country: None (occurrence: None)
  Receive Date: 20100204
  Receipt Date: 20100101
  Transmission Date: 20100710
  Serious: Yes (Hospitalization, Other)
  Sender: FDA-Public Use
  Company Number: TCI2010A00013

PATIENT
  Age: 70 Year
  Sex: Male

DRUGS (23)
  1. ACTOS [Suspect]
     Indication: TYPE 2 DIABETES MELLITUS
     Dosage: 30 MG (30 MG, 1D) PER ORAL
     Route: 048
     Dates: start: 20071113, end: 20090306
  2. ALISKIREN VS PLACEBO (CODE NOT BROKEN) (ALL OTHER THERAPEUTIC PRODUCTS [Concomitant]
  3. TRANDOLAPRIL [Concomitant]
  4. NOVOLOG [Concomitant]
  5. LEVEMIR [Concomitant]
  6. AMARYL [Concomitant]
  7. GLYCORAN (METFORMIN HYDROCHLORIDE) [Concomitant]
  8. GLUCOBAY [Concomitant]
  9. ADALAT CC [Concomitant]
  10. CALBLOCK (AZENIDIPINE) [Concomitant]
  11. KERLONE [Concomitant]
  12. ANPLAG (SARPOGRELATE HYDROCHLORIDE) [Concomitant]
  13. NIZATIDINE [Concomitant]
  14. TORSEMIDE [Concomitant]
  15. LANTUS [Concomitant]
  16. ADONA (CARBAZOCHROME SODIUM SULFONATE) [Concomitant]
  17. CARNACULIN (KALLIDINOGENASE) [Concomitant]
  18. TRAVATAN [Concomitant]
  19. SARPOGRELATE (SARPOGRELATE HYDROCHLORIDE) [Concomitant]
  20. TRANDOLAPRIL [Concomitant]
  21. TIMOLOL MALEATE [Concomitant]
  22. DICHLOTRIDE (HYDROCHLOROTHIAZIDE) [Concomitant]
  23. OMEPRAZOLE [Concomitant]

REACTIONS (14)
  - ARTERIOSCLEROSIS [None]
  - ARTERIOSCLEROSIS OBLITERANS [None]
  - BRAIN STEM INFARCTION [None]
  - CEREBRAL INFARCTION [None]
  - CONDITION AGGRAVATED [None]
  - CORONARY ARTERY OCCLUSION [None]
  - EMBOLISM [None]
  - EYELID PTOSIS [None]
  - GENERAL PHYSICAL HEALTH DETERIORATION [None]
  - HEMIPLEGIA [None]
  - MYOCARDIAL ISCHAEMIA [None]
  - NYSTAGMUS [None]
  - OEDEMA PERIPHERAL [None]
  - PLEURAL EFFUSION [None]
